FAERS Safety Report 12342689 (Version 7)
Quarter: 2016Q3

REPORT INFORMATION
  Report Type: Report from Study
  Country: DE (occurrence: DE)
  Receive Date: 20160506
  Receipt Date: 20160830
  Transmission Date: 20161109
  Serious: Yes (Life-Threatening, Hospitalization)
  Sender: FDA-Public Use
  Company Number: DE-AMGEN-DEUCT2016056857

PATIENT
  Age: 23 Month
  Sex: Male
  Weight: 8.26 kg

DRUGS (25)
  1. PREDNISOLON [Concomitant]
     Active Substance: PREDNISOLONE
     Dosage: 6 MG, UNK
     Route: 037
     Dates: start: 20151023, end: 20160323
  2. CYTARABIN [Concomitant]
     Active Substance: CYTARABINE
     Dosage: 20 MG, UNK
     Route: 037
     Dates: start: 20151023, end: 20160323
  3. TAZOBAC [Concomitant]
     Active Substance: PIPERACILLIN SODIUM\TAZOBACTAM SODIUM
     Dosage: 700-850 MG, UNK
     Route: 042
     Dates: start: 20160313, end: 20160330
  4. BLINATUMOMAB [Suspect]
     Active Substance: BLINATUMOMAB
     Indication: ACUTE LYMPHOCYTIC LEUKAEMIA
     Dosage: 15 MUG/M2, UNK
     Route: 042
     Dates: start: 20151130, end: 20160323
  5. ANTRA [Concomitant]
     Active Substance: OMEPRAZOLE
     Dosage: 5 MG, UNK
     Route: 048
     Dates: start: 20151127
  6. METHOTREXATE (METHOTREXATE SODIUM) [Concomitant]
     Active Substance: METHOTREXATE SODIUM
     Dosage: 8 MG, UNK
     Route: 037
     Dates: start: 20151023, end: 20160323
  7. FOLSAN [Concomitant]
     Active Substance: FOLIC ACID
     Dosage: 0.4 MG, UNK
     Route: 048
     Dates: start: 20151027
  8. MELATONIN [Concomitant]
     Active Substance: MELATONIN
     Dosage: 5 MG, UNK
     Route: 048
     Dates: start: 20151215
  9. DORMICUM [Concomitant]
     Active Substance: MIDAZOLAM\MIDAZOLAM HYDROCHLORIDE
     Dosage: 4 MG, UNK
     Route: 042
     Dates: start: 20151221, end: 20151221
  10. G-CSF [Concomitant]
     Active Substance: GRANULOCYTE COLONY-STIMULATING FACTOR NOS
     Dosage: 50 MUG, UNK
     Route: 058
     Dates: start: 20160108
  11. GENTAMICIN. [Concomitant]
     Active Substance: GENTAMICIN
     Dosage: 40-45 MG, UNK
     Route: 042
     Dates: start: 20160312, end: 20160330
  12. PARACETAMOL [Concomitant]
     Active Substance: ACETAMINOPHEN
     Dosage: 125 MG, UNK
     Route: 042
     Dates: start: 20151125, end: 20160327
  13. ZOFRAN [Concomitant]
     Active Substance: ONDANSETRON HYDROCHLORIDE
     Dosage: 1.5 MG, UNK
     Route: 042
     Dates: start: 20151125, end: 20160106
  14. MULTILIND [Concomitant]
     Dosage: 100000 UNK, UNK
     Route: 061
     Dates: start: 20160210
  15. KEPINOL [Concomitant]
     Active Substance: SULFAMETHOXAZOLE\TRIMETHOPRIM
     Dosage: 40 MG, UNK
     Route: 048
     Dates: start: 20150921
  16. PRIVIGEN [Concomitant]
     Active Substance: HUMAN IMMUNOGLOBULIN G
     Dosage: 2.5 G, UNK
     Route: 042
     Dates: start: 20160324, end: 20160324
  17. ACICLOVIR [Concomitant]
     Active Substance: ACYCLOVIR
     Dosage: 40 MG, UNK
     Route: 048
     Dates: start: 20150909
  18. TAVEGIL [Concomitant]
     Active Substance: CLEMASTINE FUMARATE
     Dosage: 0.3 MG, UNK
     Route: 042
     Dates: start: 20151221, end: 20151221
  19. AMPHO MORONAL [Concomitant]
     Active Substance: AMPHOTERICIN B
     Dosage: 1 ML, UNK
     Route: 048
     Dates: start: 20150617
  20. DEXAMETHASONE. [Concomitant]
     Active Substance: DEXAMETHASONE
     Dosage: 1.5 TO 3 MG, UNK
     Dates: start: 20151126, end: 20151130
  21. ROCEPHIN [Concomitant]
     Active Substance: CEFTRIAXONE SODIUM
     Dosage: 500 TO 650 MG, UNK
     Dates: start: 20160312, end: 20160415
  22. NOVALGIN [Concomitant]
     Active Substance: METAMIZOLE SODIUM
     Dosage: 100 MG, UNK
     Route: 042
     Dates: start: 20160312, end: 20160312
  23. DIFLUCAN [Concomitant]
     Active Substance: FLUCONAZOLE
     Dosage: 50 MG, UNK
     Route: 048
     Dates: start: 20150911
  24. PHYTOMENADION [Concomitant]
     Dosage: 20 GTT, UNK
     Route: 048
     Dates: start: 20151027
  25. CEFIXIME. [Concomitant]
     Active Substance: CEFIXIME
     Dosage: 100 MG, UNK
     Route: 048
     Dates: start: 20160416

REACTIONS (2)
  - Hypokalaemia [Recovered/Resolved]
  - Bronchostenosis [Recovered/Resolved]

NARRATIVE: CASE EVENT DATE: 20160503
